FAERS Safety Report 15900211 (Version 8)
Quarter: 2019Q2

REPORT INFORMATION
  Report Type: Report from Study
  Country: JP (occurrence: JP)
  Receive Date: 20190201
  Receipt Date: 20190621
  Transmission Date: 20190711
  Serious: Yes (Hospitalization)
  Sender: FDA-Public Use
  Company Number: JP-EISAI MEDICAL RESEARCH-EC-2019-051364

PATIENT
  Age: 68 Year
  Sex: Female
  Weight: 42.8 kg

DRUGS (14)
  1. POLAPREZINC [Concomitant]
     Active Substance: POLAPREZINC
     Dates: start: 20180627, end: 20190122
  2. FAMOTIDINE. [Concomitant]
     Active Substance: FAMOTIDINE
     Dates: start: 20180627, end: 20190122
  3. ALPRAZOLAM. [Concomitant]
     Active Substance: ALPRAZOLAM
     Dates: start: 20180627
  4. AMLODIPINE [Concomitant]
     Active Substance: AMLODIPINE BESYLATE
     Dates: start: 20190116, end: 20190217
  5. PEMBROLIZUMAB. [Suspect]
     Active Substance: PEMBROLIZUMAB
     Indication: ENDOMETRIAL CANCER
     Route: 041
     Dates: start: 20181227, end: 20181227
  6. TOWA GP GRANULES [Concomitant]
     Dates: start: 20180627
  7. DAIMEDIN 3B [Concomitant]
     Dates: start: 20180627
  8. ESCITALOPRAM OXALATE. [Concomitant]
     Active Substance: ESCITALOPRAM OXALATE
     Dates: start: 20180627, end: 20190128
  9. EXCELASE [Concomitant]
     Active Substance: PANCRELIPASE
     Dates: start: 20180627, end: 20190125
  10. PEMBROLIZUMAB. [Suspect]
     Active Substance: PEMBROLIZUMAB
     Route: 041
     Dates: start: 20190117, end: 20190117
  11. BROTIZOLAM [Concomitant]
     Active Substance: BROTIZOLAM
     Dates: start: 20180627, end: 20190123
  12. LENVATINIB [Suspect]
     Active Substance: LENVATINIB
     Indication: ENDOMETRIAL CANCER
     Route: 048
     Dates: start: 20181227, end: 20190124
  13. ACETAMINOPHEN. [Concomitant]
     Active Substance: ACETAMINOPHEN
     Dates: start: 20181115, end: 20190122
  14. MAGNESIUM OXIDE. [Concomitant]
     Active Substance: MAGNESIUM OXIDE
     Dates: start: 20180627, end: 20190122

REACTIONS (1)
  - Gastrointestinal perforation [Recovered/Resolved]

NARRATIVE: CASE EVENT DATE: 20190123
